FAERS Safety Report 5535701-5 (Version None)
Quarter: 2007Q4

REPORT INFORMATION
  Report Type: 
  Country: None (occurrence: None)
  Receive Date: 20071206
  Receipt Date: 20070227
  Transmission Date: 20080405
  Serious: Yes (Hospitalization)
  Sender: FDA-Public Use
  Company Number: US-AMGEN-US212936

PATIENT
  Sex: Female

DRUGS (2)
  1. ENBREL [Suspect]
     Indication: PSORIATIC ARTHROPATHY
     Route: 058
     Dates: start: 19981101, end: 20060901
  2. METHOTREXATE [Concomitant]
     Route: 051
     Dates: end: 20060901

REACTIONS (3)
  - PERIRECTAL ABSCESS [None]
  - POST PROCEDURAL INFECTION [None]
  - PSORIATIC ARTHROPATHY [None]
